FAERS Safety Report 11500842 (Version 1)
Quarter: 2015Q3

REPORT INFORMATION
  Report Type: Spontaneous
  Country: US (occurrence: None)
  Receive Date: 20150911
  Receipt Date: 20150911
  Transmission Date: 20151125
  Serious: Yes (Life-Threatening)
  Sender: FDA-Public Use
  Company Number: None

PATIENT
  Age: 67 Year
  Sex: Male
  Weight: 79.38 kg

DRUGS (3)
  1. ENOXAPARIN [Suspect]
     Active Substance: ENOXAPARIN
     Indication: ANTICOAGULANT THERAPY
     Dosage: 2 PER DAY  TWICE DAILY  INTO THE MUSCLE
     Dates: start: 20150909, end: 20150909
  2. AZORE [Concomitant]
  3. LIPITOR [Concomitant]
     Active Substance: ATORVASTATIN CALCIUM

REACTIONS (5)
  - Product quality issue [None]
  - Eye pruritus [None]
  - Product substitution issue [None]
  - Lacrimation increased [None]
  - Eye swelling [None]

NARRATIVE: CASE EVENT DATE: 20150909
